FAERS Safety Report 12765480 (Version 1)
Quarter: 2016Q3

REPORT INFORMATION
  Report Type: Spontaneous
  Country: US (occurrence: US)
  Receive Date: 20160921
  Receipt Date: 20160921
  Transmission Date: 20161109
  Serious: No
  Sender: FDA-Public Use
  Company Number: US-ASTRAZENECA-2016SE81586

PATIENT
  Age: 19705 Day
  Sex: Male
  Weight: 111.1 kg

DRUGS (10)
  1. LORAZEPAM. [Concomitant]
     Active Substance: LORAZEPAM
     Indication: PANIC ATTACK
     Route: 048
     Dates: start: 2015
  2. DEPAKOTE [Concomitant]
     Active Substance: DIVALPROEX SODIUM
     Indication: BIPOLAR DISORDER
     Dosage: 600.0MG UNKNOWN
     Route: 048
  3. SEROQUEL [Suspect]
     Active Substance: QUETIAPINE FUMARATE
     Indication: BIPOLAR DISORDER
     Dosage: 200MG DURING THE DAY AND 600MG AT NIGHT
     Route: 048
  4. FLUOXETINE [Concomitant]
     Active Substance: FLUOXETINE HYDROCHLORIDE
     Indication: PANIC ATTACK
     Dosage: 20.0MG UNKNOWN
     Route: 048
     Dates: start: 2000
  5. SEROQUEL [Suspect]
     Active Substance: QUETIAPINE FUMARATE
     Indication: BIPOLAR DISORDER
     Route: 048
  6. SEROQUEL [Suspect]
     Active Substance: QUETIAPINE FUMARATE
     Indication: BIPOLAR DISORDER
     Dosage: 200MG DURING THE DAY AND 600MG AT NIGHT (QUETIAPINE FUMARATE)
     Route: 048
  7. SEROQUEL [Suspect]
     Active Substance: QUETIAPINE FUMARATE
     Indication: BIPOLAR DISORDER
     Route: 048
     Dates: start: 20160722
  8. OXYCARBAPINE [Concomitant]
     Indication: ILL-DEFINED DISORDER
     Dosage: GENERIC FOR TRILEPTAL,
     Route: 048
     Dates: start: 2012
  9. SEROQUEL [Suspect]
     Active Substance: QUETIAPINE FUMARATE
     Indication: BIPOLAR DISORDER
     Route: 048
     Dates: start: 20160722
  10. SEROQUEL [Suspect]
     Active Substance: QUETIAPINE FUMARATE
     Indication: BIPOLAR DISORDER
     Dosage: 100MG TWICE DAILY (QUETIAPINE FUMARATE)
     Route: 048
     Dates: start: 20160722

REACTIONS (9)
  - Panic attack [Unknown]
  - Nasal congestion [Unknown]
  - Sleep disorder [Unknown]
  - Impatience [Unknown]
  - Hunger [Unknown]
  - Drug effect decreased [Unknown]
  - Seasonal allergy [Unknown]
  - Dyspnoea [Unknown]
  - Product use issue [Unknown]

NARRATIVE: CASE EVENT DATE: 20160722
